FAERS Safety Report 24790125 (Version 1)
Quarter: 2024Q4

REPORT INFORMATION
  Report Type: Spontaneous
  Country: FR (occurrence: FR)
  Receive Date: 20241230
  Receipt Date: 20241230
  Transmission Date: 20250114
  Serious: Yes (Other)
  Sender: MYLAN
  Company Number: None

PATIENT
  Age: 68 Year
  Sex: Female
  Weight: 85 kg

DRUGS (2)
  1. DOXYCYCLINE [Suspect]
     Active Substance: DOXYCYCLINE
     Indication: Device related infection
     Dosage: 200 MILLIGRAM, QD (200MG/D)
     Route: 048
     Dates: start: 20241015, end: 20241029
  2. OFLOXACIN [Suspect]
     Active Substance: OFLOXACIN
     Indication: Device related infection
     Dosage: 400 MILLIGRAM, BID (400MG, 2 TIMES/D) (800 MILLIGRAMS, 1 DAY) (SCORED FILM-COATED TABLET)
     Route: 048
     Dates: start: 20241015, end: 20241029

REACTIONS (2)
  - Neutropenia [Recovered/Resolved]
  - Anaemia [Recovering/Resolving]

NARRATIVE: CASE EVENT DATE: 20241029
